FAERS Safety Report 6790786-3 (Version None)
Quarter: 2010Q2

REPORT INFORMATION
  Report Type: 
  Country: None (occurrence: None)
  Receive Date: 20100624
  Receipt Date: 20100622
  Transmission Date: 20101027
  Serious: Yes (Death)
  Sender: FDA-Public Use
  Company Number: CA-B.I. PHARMACEUTICALS,INC./RIDGEFIELD-2010-CN-00409CN

PATIENT
  Sex: Female

DRUGS (4)
  1. CATAPRES [Suspect]
     Indication: PAIN MANAGEMENT
  2. BUPIVACAINE HCL [Concomitant]
     Indication: PAIN MANAGEMENT
     Route: 037
  3. MORPHINE [Concomitant]
     Indication: PAIN MANAGEMENT
     Route: 037
  4. MORPHINE [Concomitant]
     Route: 051

REACTIONS (2)
  - PNEUMONIA [None]
  - RESPIRATORY FAILURE [None]
